FAERS Safety Report 10232660 (Version 1)
Quarter: 2014Q2

REPORT INFORMATION
  Report Type: Report from Study
  Country: US (occurrence: US)
  Receive Date: 20140612
  Receipt Date: 20140612
  Transmission Date: 20141212
  Serious: Yes (Hospitalization)
  Sender: FDA-Public Use
  Company Number: US-JNJFOC-20140605094

PATIENT
  Sex: Female
  Weight: 99.79 kg

DRUGS (13)
  1. SIMPONI [Suspect]
     Indication: RHEUMATOID ARTHRITIS
     Route: 058
     Dates: start: 20140326
  2. SIMPONI [Suspect]
     Indication: RHEUMATOID ARTHRITIS
     Route: 058
     Dates: start: 2013
  3. CELEXA [Concomitant]
     Indication: DEPRESSION
     Route: 048
  4. LEVOTHYROXINE [Concomitant]
     Indication: HYPOTHYROIDISM
     Route: 048
  5. PRILOSEC [Concomitant]
     Indication: GASTROOESOPHAGEAL REFLUX DISEASE
     Route: 048
  6. ATENOLOL [Concomitant]
     Indication: BLOOD PRESSURE
     Route: 048
  7. VESICARE [Concomitant]
     Route: 048
  8. SINGULAIR [Concomitant]
     Indication: MULTIPLE ALLERGIES
     Route: 048
  9. GLIMEPIRIDE [Concomitant]
     Indication: DIABETES MELLITUS
     Route: 048
  10. BYDUREON [Concomitant]
     Indication: DIABETES MELLITUS
     Route: 058
  11. XANAX [Concomitant]
     Indication: ANXIETY
     Route: 048
  12. OPANA [Concomitant]
     Indication: PAIN
     Route: 048
  13. PERCOCET [Concomitant]
     Indication: PAIN
     Route: 048

REACTIONS (1)
  - Breast cancer [Recovered/Resolved]
